FAERS Safety Report 5566960-0 (Version None)
Quarter: 2007Q4

REPORT INFORMATION
  Report Type: 
  Country: None (occurrence: None)
  Receive Date: 20071219
  Receipt Date: 20070710
  Transmission Date: 20080405
  Serious: No
  Sender: FDA-Public Use
  Company Number: US-BRISTOL-MYERS SQUIBB COMPANY-13839972

PATIENT
  Sex: Female
  Weight: 91 kg

DRUGS (3)
  1. PRAVACHOL [Suspect]
     Indication: BLOOD CHOLESTEROL INCREASED
     Route: 048
  2. COUMADIN [Concomitant]
  3. ATENOLOL [Concomitant]

REACTIONS (1)
  - FAECES DISCOLOURED [None]
